FAERS Safety Report 5448013-5 (Version None)
Quarter: 2007Q3

REPORT INFORMATION
  Report Type: 
  Country: None (occurrence: None)
  Receive Date: 20070910
  Receipt Date: 20070821
  Transmission Date: 20080115
  Serious: No
  Sender: FDA-Public Use
  Company Number: US-BOEHRINGER INGELHEIM PHARMACEUTICALS, INC.-2007-BP-17335BP

PATIENT
  Sex: Male
  Weight: 79 kg

DRUGS (4)
  1. VIRAMUNE [Suspect]
     Indication: HIV INFECTION
     Dates: start: 20070509, end: 20070522
  2. VIRAMUNE [Suspect]
     Route: 048
     Dates: start: 20070522
  3. TRUVADA [Concomitant]
     Dates: start: 20070509
  4. VALTREX [Concomitant]
     Dates: start: 20070213

REACTIONS (11)
  - ARTHRALGIA [None]
  - FATIGUE [None]
  - JAUNDICE [None]
  - LIVER FUNCTION TEST ABNORMAL [None]
  - MALAISE [None]
  - MYALGIA [None]
  - PHARYNGOLARYNGEAL PAIN [None]
  - PYREXIA [None]
  - RASH ERYTHEMATOUS [None]
  - RASH MACULAR [None]
  - RASH MACULO-PAPULAR [None]
